FAERS Safety Report 7544176-6 (Version None)
Quarter: 2011Q2

REPORT INFORMATION
  Report Type: 
  Country: None (occurrence: None)
  Receive Date: 20110613
  Receipt Date: 20070426
  Transmission Date: 20111010
  Serious: Yes (Other)
  Sender: FDA-Public Use
  Company Number: PHMT2007CA01126

PATIENT
  Sex: Female

DRUGS (1)
  1. SANDOSTATIN LAR [Suspect]
     Indication: CROHN'S DISEASE
     Dosage: 20MG ONCE A MONTH
     Route: 030
     Dates: start: 20060315

REACTIONS (3)
  - STRESS AT WORK [None]
  - WEIGHT DECREASED [None]
  - ANXIETY [None]
